FAERS Safety Report 5129271-3 (Version None)
Quarter: 2006Q4

REPORT INFORMATION
  Report Type: 
  Country: None (occurrence: None)
  Receive Date: 20061012
  Receipt Date: 20061002
  Transmission Date: 20070319
  Serious: Yes (Hospitalization)
  Sender: FDA-Public Use
  Company Number: 230391

PATIENT
  Age: 63 Year
  Sex: Female
  Weight: 74.6 kg

DRUGS (6)
  1. AVASTIN [Suspect]
     Indication: NON-SMALL CELL LUNG CANCER
     Dosage: 15 MG/KG, Q3W, INTRAVENOUS
     Route: 042
     Dates: start: 20060718, end: 20060919
  2. CARBOPLATIN [Suspect]
     Indication: NON-SMALL CELL LUNG CANCER
     Dosage: 6 AUC, Q3W, INTRAVENOUS
     Route: 042
     Dates: start: 20030718, end: 20060919
  3. ALIMTA [Suspect]
     Indication: NON-SMALL CELL LUNG CANCER
     Dosage: 500 MG/M2, Q3W, INTRAVENOUS
     Route: 042
     Dates: start: 20060718, end: 20060919
  4. MS CONTIN [Concomitant]
  5. LIPITOR [Concomitant]
  6. HYZAAR [Concomitant]

REACTIONS (14)
  - ABDOMINAL PAIN LOWER [None]
  - BLOOD CHLORIDE DECREASED [None]
  - BLOOD SODIUM DECREASED [None]
  - CHILLS [None]
  - CONSTIPATION [None]
  - DECREASED APPETITE [None]
  - DIVERTICULITIS [None]
  - DYSURIA [None]
  - HYPOKALAEMIA [None]
  - LEUKOCYTOSIS [None]
  - NAUSEA [None]
  - ORAL INTAKE REDUCED [None]
  - REFUSAL OF TREATMENT BY PATIENT [None]
  - VOMITING [None]
